FAERS Safety Report 5071898-1 (Version None)
Quarter: 2006Q3

REPORT INFORMATION
  Report Type: 
  Country: None (occurrence: None)
  Receive Date: 20060804
  Receipt Date: 20060727
  Transmission Date: 20061208
  Serious: Yes (Death, Life-Threatening, Other)
  Sender: FDA-Public Use
  Company Number: PH-MERCK-0607PHL00009

PATIENT
  Age: 76 Year
  Sex: Male

DRUGS (1)
  1. PRIMAXIN [Suspect]
     Indication: NOSOCOMIAL INFECTION
     Route: 041
     Dates: start: 20060701, end: 20060701

REACTIONS (2)
  - CONVULSION [None]
  - SEPSIS [None]
